FAERS Safety Report 9744654 (Version 3)
Quarter: 2013Q4

REPORT INFORMATION
  Report Type: Spontaneous
  Country: JP (occurrence: JP)
  Receive Date: 20131210
  Receipt Date: 20131219
  Transmission Date: 20140711
  Serious: Yes (Hospitalization, Other)
  Sender: FDA-Public Use
  Company Number: JP-ASTRAZENECA-2013SE87643

PATIENT
  Sex: Male

DRUGS (2)
  1. CASODEX [Suspect]
     Indication: PROSTATE CANCER
     Route: 048
     Dates: start: 20110601, end: 20131201
  2. ZOLADEX LA [Suspect]
     Indication: PROSTATE CANCER
     Route: 058
     Dates: start: 20110601, end: 20131201

REACTIONS (5)
  - Hypopituitarism [Unknown]
  - Pituitary tumour [Unknown]
  - Blood thyroid stimulating hormone decreased [Unknown]
  - Blood corticotrophin decreased [Unknown]
  - Blood cortisol decreased [Unknown]
